FAERS Safety Report 14002853 (Version 1)
Quarter: 2017Q3

REPORT INFORMATION
  Report Type: Spontaneous
  Country: US (occurrence: US)
  Receive Date: 20170922
  Receipt Date: 20170922
  Transmission Date: 20171128
  Serious: No
  Sender: FDA-Public Use
  Company Number: US-JNJFOC-20170826013

PATIENT
  Age: 60 Year
  Sex: Female
  Weight: 81.65 kg

DRUGS (2)
  1. VALIUM [Concomitant]
     Active Substance: DIAZEPAM
     Indication: BACK PAIN
     Route: 048
     Dates: start: 2015
  2. XARELTO [Suspect]
     Active Substance: RIVAROXABAN
     Indication: CONGENITAL ANOMALY
     Dosage: AT NIGHT
     Route: 048
     Dates: start: 2012

REACTIONS (3)
  - Off label use [Unknown]
  - Product use in unapproved indication [Unknown]
  - Pain in extremity [Not Recovered/Not Resolved]

NARRATIVE: CASE EVENT DATE: 2012
